FAERS Safety Report 19717627 (Version 1)
Quarter: 2021Q3

REPORT INFORMATION
  Report Type: Spontaneous
  Country: US (occurrence: US)
  Receive Date: 20210819
  Receipt Date: 20210819
  Transmission Date: 20211014
  Serious: Yes (Hospitalization)
  Sender: FDA-Public Use
  Company Number: US-AMGEN-USASP2021124711

PATIENT
  Age: 60 Year
  Sex: Male

DRUGS (2)
  1. REPATHA [Suspect]
     Active Substance: EVOLOCUMAB
     Indication: HYPERCHOLESTEROLAEMIA
  2. REPATHA [Suspect]
     Active Substance: EVOLOCUMAB
     Indication: BLOOD CHOLESTEROL ABNORMAL
     Dosage: 140 MILLIGRAM, Q2WK
     Route: 058

REACTIONS (12)
  - Depression [Unknown]
  - Therapy partial responder [Unknown]
  - Back pain [Unknown]
  - Arthropod bite [Unknown]
  - Unevaluable event [Unknown]
  - Blood immunoglobulin A increased [Unknown]
  - Blood creatinine increased [Unknown]
  - Endometrial disorder [Unknown]
  - Red blood cell sedimentation rate increased [Unknown]
  - Interleukin level increased [Unknown]
  - Pain in extremity [Unknown]
  - Device difficult to use [Unknown]
